FAERS Safety Report 8002415-1 (Version None)
Quarter: 2011Q4

REPORT INFORMATION
  Report Type: 
  Country: None (occurrence: None)
  Receive Date: 20111222
  Receipt Date: 20110912
  Transmission Date: 20120403
  Serious: No
  Sender: FDA-Public Use
  Company Number: US-GLAXOSMITHKLINE-A0944202A

PATIENT
  Age: 35 Year
  Sex: Male

DRUGS (1)
  1. NICORETTE [Suspect]
     Indication: TOBACCO ABUSE
     Dates: start: 20110801

REACTIONS (6)
  - MALAISE [None]
  - ABDOMINAL DISCOMFORT [None]
  - CONSTIPATION [None]
  - DRUG ADMINISTRATION ERROR [None]
  - ABDOMINAL PAIN UPPER [None]
  - NAUSEA [None]
